FAERS Safety Report 9547934 (Version 2)
Quarter: 2013Q3

REPORT INFORMATION
  Report Type: Spontaneous
  Country: US (occurrence: US)
  Receive Date: 20130924
  Receipt Date: 20130924
  Transmission Date: 20140515
  Serious: No
  Sender: FDA-Public Use
  Company Number: US-PURDUE-USA-2012-0080817

PATIENT
  Age: 47 Year
  Sex: Female
  Weight: 63.49 kg

DRUGS (7)
  1. MORPHINE SULFATE (SIMILAR TO NDA 19-516) [Suspect]
     Indication: PAIN
     Dosage: 20 MG, TID
     Route: 048
     Dates: start: 20111223, end: 20120110
  2. MORPHINE SULFATE (SIMILAR TO NDA 19-516) [Suspect]
     Indication: POST-TRAUMATIC NECK SYNDROME
     Dosage: 50 MG, TID
     Dates: start: 20111223
  3. ZANAFLEX [Concomitant]
     Indication: MUSCLE SPASMS
     Dosage: 40 MG, BID
     Route: 048
  4. AMBIEN [Concomitant]
     Indication: INSOMNIA
     Dosage: 10 MG, PRN
     Route: 048
  5. VOLTAREN EMULGEL [Concomitant]
     Indication: PAIN
     Route: 061
  6. LIDODERM [Concomitant]
     Indication: PAIN
     Dosage: 5%
     Route: 061
  7. FLECTOR                            /00372302/ [Concomitant]
     Indication: PAIN
     Dosage: 1.3% PATCHES
     Route: 061

REACTIONS (7)
  - Burning sensation [Not Recovered/Not Resolved]
  - Erythema [Recovered/Resolved]
  - Inflammation [Recovered/Resolved]
  - Pruritus [Recovered/Resolved]
  - Urticaria [Recovered/Resolved]
  - Drug hypersensitivity [Recovered/Resolved]
  - Rash [Recovered/Resolved]
